FAERS Safety Report 13275897 (Version 1)
Quarter: 2017Q1

REPORT INFORMATION
  Report Type: Spontaneous
  Country: TR (occurrence: TR)
  Receive Date: 20170228
  Receipt Date: 20170228
  Transmission Date: 20170428
  Serious: Yes (Other)
  Sender: FDA-Public Use
  Company Number: TR-ROCHE-1898542

PATIENT
  Age: 29 Week
  Sex: Male
  Weight: 1.25 kg

DRUGS (1)
  1. RANIBIZUMAB [Suspect]
     Active Substance: RANIBIZUMAB
     Indication: RETINOPATHY OF PREMATURITY
     Dosage: 0.25 MG, UNK (BOTH EYES)
     Route: 031

REACTIONS (3)
  - Off label use [Unknown]
  - Disease progression [Unknown]
  - Drug ineffective [Unknown]
